FAERS Safety Report 21345771 (Version 2)
Quarter: 2022Q3

REPORT INFORMATION
  Report Type: Spontaneous
  Country: US (occurrence: US)
  Receive Date: 20220916
  Receipt Date: 20220923
  Transmission Date: 20221026
  Serious: Yes (Other)
  Sender: FDA-Public Use
  Company Number: US-SA-SAC20220915000455

PATIENT
  Age: 58 Year
  Sex: Male

DRUGS (2)
  1. CABLIVI [Suspect]
     Active Substance: CAPLACIZUMAB-YHDP
     Indication: Thrombotic microangiopathy
     Dosage: 11 MG
     Route: 058
     Dates: start: 20220904
  2. ASPIRIN [Concomitant]
     Active Substance: ASPIRIN
     Dosage: UNK, QD

REACTIONS (5)
  - Haemorrhage [Unknown]
  - Platelet count decreased [Unknown]
  - Contusion [Recovering/Resolving]
  - Central venous catheter removal [Unknown]
  - Product use in unapproved indication [Unknown]

NARRATIVE: CASE EVENT DATE: 20220901
